FAERS Safety Report 4616131-7 (Version None)
Quarter: 2005Q1

REPORT INFORMATION
  Report Type: 
  Country: None (occurrence: None)
  Receive Date: 20050323
  Receipt Date: 20050315
  Transmission Date: 20050727
  Serious: Yes (Other)
  Sender: FDA-Public Use
  Company Number: US-ABBOTT-05P-163-0294238-00

PATIENT
  Sex: Female
  Weight: 54.48 kg

DRUGS (5)
  1. SYNTHROID [Suspect]
     Indication: THYROID DISORDER
     Route: 048
     Dates: start: 19990101, end: 20040801
  2. SYNTHROID [Suspect]
     Route: 048
     Dates: start: 20041001, end: 20041101
  3. SYNTHROID [Suspect]
     Dosage: 1.5 TABLETS OF 75 MCG TABLET  ONCE DAILY, TOTAL DAILY DOSE 112 MCG
     Route: 048
     Dates: start: 20041201
  4. UNSPECIFIED MEDICATIONS [Concomitant]
     Indication: DRUG USE FOR UNKNOWN INDICATION
     Route: 065
  5. LEVOTHYROXINE [Concomitant]
     Indication: THYROID DISORDER
     Route: 048
     Dates: start: 20041101, end: 20041201

REACTIONS (10)
  - DYSPHONIA [None]
  - FOOD ALLERGY [None]
  - NASAL CONGESTION [None]
  - RESPIRATORY TRACT CONGESTION [None]
  - SENSATION OF FOREIGN BODY [None]
  - THYROID GLAND CANCER [None]
  - TONGUE DRY [None]
  - URTICARIA [None]
  - VISUAL DISTURBANCE [None]
  - WEIGHT DECREASED [None]
